FAERS Safety Report 12131101 (Version 1)
Quarter: 2016Q1

REPORT INFORMATION
  Report Type: Spontaneous
  Country: US (occurrence: US)
  Receive Date: 20160301
  Receipt Date: 20160301
  Transmission Date: 20160526
  Serious: No
  Sender: FDA-Public Use
  Company Number: US-PFIZER INC-2016095601

PATIENT
  Age: 52 Year
  Sex: Female
  Weight: 80 kg

DRUGS (30)
  1. PRAVACHOL [Concomitant]
     Active Substance: PRAVASTATIN SODIUM
     Indication: ESSENTIAL HYPERTENSION
     Dosage: 20 MG, DAILY (ONE TABLET BY MOUTH EVERY DAY)
     Route: 048
     Dates: start: 20160106
  2. SINGULAIR [Concomitant]
     Active Substance: MONTELUKAST SODIUM
     Dosage: 10 MG, 1X/DAY (TAKE 1 TAB BY MOUTH NIGHTLY AT BEDTIME)
     Route: 048
  3. EPIPEN [Concomitant]
     Active Substance: EPINEPHRINE
     Indication: ANAPHYLACTIC REACTION
     Dosage: 0.3 ML, AS NEEDED
  4. LORAZEPAM. [Concomitant]
     Active Substance: LORAZEPAM
     Dosage: UNK (TAKE 0.5 TABS BY MOUTH 2 (TWO) TIMES DAILY AS NEEDED)
     Route: 048
  5. SINEQUAN [Concomitant]
     Active Substance: DOXEPIN HYDROCHLORIDE
     Dosage: 75 MG, 1X/DAY (TAKE ONE CAPSULE BY MOUTH EVERY NIGHT AT BED TIME)
     Route: 048
  6. ADVIL [Concomitant]
     Active Substance: IBUPROFEN
     Indication: PAIN
     Dosage: 800 MG, AS NEEDED (TAKE ONE TABLET BY MOUTH THREE TIMES A DAY AS NEEDED FOR PAIN)
     Route: 048
  7. ATIVAN [Concomitant]
     Active Substance: LORAZEPAM
     Indication: ANXIETY
     Dosage: 0.5 MG, AS NEEDED (TAKE 1 TAB BY MOUTH 2 (TWO) TIMES DAILY AS NEEDED FOR ANXIETY)
     Route: 048
     Dates: start: 20160106
  8. PRILOSEC [Concomitant]
     Active Substance: OMEPRAZOLE MAGNESIUM
     Dosage: 20 MG, 1X/DAY (TAKE 2 CAPS BY MOUTH EVERY MORNING BEFORE BREAKFAST)
     Route: 048
  9. ALDACTAZIDE [Concomitant]
     Active Substance: HYDROCHLOROTHIAZIDE\SPIRONOLACTONE
     Dosage: SPIRONOLACTONE: 25MG-HYDROCHLOROTHIAZIDE: 25MG) (TAKE TWO TABLETS BY MOUTH EVERY DAY
     Route: 048
  10. MOTRIN [Concomitant]
     Active Substance: IBUPROFEN
     Indication: PAIN
     Dosage: 800 MG, AS NEEDED (TAKE ONE TABLET BY MOUTH THREE TIMES A DAY AS NEEDED FOR PAIN)
     Route: 048
  11. LAMICTAL [Concomitant]
     Active Substance: LAMOTRIGINE
     Dosage: 200 MG, DAILY (TAKE ONE TABLET BY MOUTH EVERY DAY)
     Route: 048
  12. BACTROBAN [Concomitant]
     Active Substance: MUPIROCIN\MUPIROCIN CALCIUM
     Dosage: 2 %, DAILY (APPLY TOPICALLY 2 TO 3 (TWO TO THREE) TIMES DAILY TO AFFECTED AREA)
     Route: 061
  13. MAGNESIUM [Concomitant]
     Active Substance: MAGNESIUM
     Dosage: 100 MG, DAILY (1 (INCLUDES CALCIUM) PO DAILY)
     Route: 048
  14. BONINE [Concomitant]
     Active Substance: MECLIZINE HYDROCHLORIDE
     Indication: DIZZINESS
     Dosage: 25 MG, AS NEEDED (TAKE ONE TABLET BY MOUTH THREE TIMES A DAY AS NEEDED FOR DIZZINESS)
     Route: 048
  15. LIDODERM [Concomitant]
     Active Substance: LIDOCAINE
     Dosage: 700 MG, 1X/DAY (PLACE 1 PATCH ONTO THE SKIN ONCE DAILY (EVERY 24 HOURS))
  16. ZITHROMAX [Concomitant]
     Active Substance: AZITHROMYCIN DIHYDRATE
     Indication: NASOPHARYNGITIS
     Dosage: 500 MG, SINGLE (TODAY)
     Route: 048
     Dates: start: 20160106
  17. LYRICA [Suspect]
     Active Substance: PREGABALIN
     Dosage: 75 MG, 2X/DAY (TAKE 1 CAP BY MOUTH 2 (TWO) TIMES DAILY)
     Route: 048
  18. MYCOSTATIN [Concomitant]
     Active Substance: NYSTATIN
     Dosage: UNK (100000 UNIT/GRAM CREAM) (APPLY TOPICALLY 2 (TWO) TIMES DAILY)
     Route: 061
  19. ROBAXIN [Concomitant]
     Active Substance: METHOCARBAMOL
     Indication: MUSCLE SPASMS
     Dosage: 750 MG, AS NEEDED (TAKE TWO TABLETS BY MOUTH THREE TIMES A DAY AS NEEDED)
     Route: 048
     Dates: start: 20160106
  20. MINIPRESS [Concomitant]
     Active Substance: PRAZOSIN HYDROCHLORIDE
     Indication: ESSENTIAL HYPERTENSION
     Dosage: 2 MG, 1X/DAY (TAKE FOUR CAPSULES BY MOUTH AT BEDTIME)
     Route: 048
     Dates: start: 20160106
  21. ZOFRAN [Concomitant]
     Active Substance: ONDANSETRON HYDROCHLORIDE
     Indication: NAUSEA
     Dosage: 4 MG, AS NEEDED (TAKE 1 TAB BY MOUTH EVERY 8 (EIGHT) HOURS AS NEEDED FOR NAUSEA)
     Route: 048
  22. LOTRIMIN [Concomitant]
     Active Substance: CLOTRIMAZOLE
     Indication: RASH
     Dosage: 1 %, 2X/DAY (APPLY TOPICALLY 2 (TWO) TIMES DAILY)
     Route: 061
     Dates: start: 20160106
  23. ZITHROMAX [Concomitant]
     Active Substance: AZITHROMYCIN DIHYDRATE
     Dosage: 250 MG, DAILY
     Route: 048
  24. CYMBALTA [Concomitant]
     Active Substance: DULOXETINE HYDROCHLORIDE
     Dosage: 60 MG, 1X/DAY (TAKE ONE CAPSULE BY MOUTH ONCE DAILY)
     Route: 048
  25. SOMINEX [Concomitant]
     Active Substance: DIPHENHYDRAMINE HYDROCHLORIDE
     Indication: PRURITUS
     Dosage: 50 MG, AS NEEDED (TAKE 50 MG BY MOUTH NIGHTLY AT BEDTIME AS NEEDED FOR ITCHING)
     Route: 048
  26. TENEX [Concomitant]
     Active Substance: GUANFACINE HYDROCHLORIDE
     Indication: POST-TRAUMATIC STRESS DISORDER
     Dosage: 1 MG, 2X/DAY (TAKE ONE TABLET BY MOUTH TWICE A DAY)
     Route: 048
     Dates: start: 20160106
  27. VITAMIN D [Concomitant]
     Active Substance: CHOLECALCIFEROL
     Indication: VITAMIN D DEFICIENCY
     Dosage: 5000 IU, WEEKLY (TAKE ONE CAPSULE BY MOUTH ONCE A WEEK)
     Route: 048
     Dates: start: 20160106
  28. MICATIN [Concomitant]
     Active Substance: MICONAZOLE NITRATE
     Indication: TINEA PEDIS
     Dosage: 2 %, 2X/DAY (APPLY TOPICALLY 2 (TWO) TIMES DAILY)
     Route: 061
     Dates: start: 20160106
  29. LORAZEPAM. [Concomitant]
     Active Substance: LORAZEPAM
     Dosage: 0.5 MG, AS NEEDED (TAKE 1 TAB BY MOUTH 2 (TWO) TIMES DAILY AS NEEDED)
     Route: 048
  30. ATARAX [Concomitant]
     Active Substance: HYDROXYZINE\HYDROXYZINE HYDROCHLORIDE
     Indication: PRURITUS
     Dosage: 10 MG, AS NEEDED (TAKE 1 TAB BY MOUTH 3 (THREE) TIMES DAILY AS NEEDED)
     Route: 048
     Dates: start: 20160106

REACTIONS (7)
  - Depression [Unknown]
  - Anxiety [Unknown]
  - Cough [Unknown]
  - Oropharyngeal pain [Unknown]
  - Back pain [Unknown]
  - Nasopharyngitis [Unknown]
  - Myalgia [Unknown]
